FAERS Safety Report 8154846-7 (Version None)
Quarter: 2012Q1

REPORT INFORMATION
  Report Type: 
  Country: None (occurrence: None)
  Receive Date: 20120221
  Receipt Date: 20120211
  Transmission Date: 20120608
  Serious: Yes (Other)
  Sender: FDA-Public Use
  Company Number: PHHY2012NL013232

PATIENT
  Age: 41 Year
  Sex: Female

DRUGS (2)
  1. ST. JOHN'S WORT [Interacting]
  2. CLOZAPINE [Suspect]

REACTIONS (4)
  - SCHIZOPHRENIA [None]
  - ANTIPSYCHOTIC DRUG LEVEL BELOW THERAPEUTIC [None]
  - PSYCHOTIC DISORDER [None]
  - DRUG INTERACTION [None]
